FAERS Safety Report 8537723-9 (Version None)
Quarter: 2012Q3

REPORT INFORMATION
  Report Type: 
  Country: None (occurrence: None)
  Receive Date: 20120725
  Receipt Date: 20120719
  Transmission Date: 20120928
  Serious: Yes (Other)
  Sender: FDA-Public Use
  Company Number: PHHY2012US062505

PATIENT
  Age: 31 Year
  Sex: Female

DRUGS (1)
  1. LEFLUNOMIDE [Suspect]
     Indication: BK VIRUS INFECTION

REACTIONS (7)
  - JAUNDICE [None]
  - LIVER FUNCTION TEST ABNORMAL [None]
  - HEPATIC FAILURE [None]
  - DRUG-INDUCED LIVER INJURY [None]
  - FATIGUE [None]
  - ASCITES [None]
  - RENAL FAILURE [None]
